FAERS Safety Report 9181016 (Version 1)
Quarter: 2013Q1

REPORT INFORMATION
  Report Type: Spontaneous
  Country: US (occurrence: US)
  Receive Date: 20130322
  Receipt Date: 20130322
  Transmission Date: 20140127
  Serious: No
  Sender: FDA-Public Use
  Company Number: PHEH2013US006683

PATIENT
  Age: 40 Year
  Sex: Female
  Weight: 77.98 kg

DRUGS (9)
  1. TASIGNA [Suspect]
     Indication: CHRONIC MYELOID LEUKAEMIA
     Dosage: 300 MG, BID
     Route: 048
  2. MORTIN [Concomitant]
     Dosage: 400 MG
     Route: 048
  3. LOESTRIN [Concomitant]
     Dosage: 1.5 DF
  4. ACYCLOVIR [Concomitant]
     Dosage: 200 MG
     Route: 048
  5. ZOFRAN [Concomitant]
     Dosage: 4 MG
     Route: 048
  6. LEVOTHYROXIN [Concomitant]
     Dosage: 100 UG
     Route: 048
  7. LIOTHYRONIN [Concomitant]
     Dosage: 25 UG
     Route: 048
  8. MAGNESIUM OXIDE [Concomitant]
     Dosage: 400 MG
     Route: 048
  9. DEXILANT [Concomitant]
     Dosage: 30 MG
     Route: 048

REACTIONS (1)
  - Chondritis [Unknown]
